FAERS Safety Report 4532294-6 (Version None)
Quarter: 2004Q4

REPORT INFORMATION
  Report Type: 
  Country: None (occurrence: None)
  Receive Date: 20041217
  Receipt Date: 20041201
  Transmission Date: 20050328
  Serious: Yes (Hospitalization)
  Sender: FDA-Public Use
  Company Number: 2004242238US

PATIENT
  Age: 73 Year
  Sex: Female
  Weight: 73.47 kg

DRUGS (4)
  1. BEXTRA [Suspect]
     Indication: OSTEOARTHRITIS
     Dosage: 10 MG (10 MG, 1 IN 1 D), ORAL
     Route: 048
     Dates: start: 20041004, end: 20041027
  2. FUROSEMIDE [Concomitant]
  3. CALCIUM (CALCIUM) [Concomitant]
  4. LOTREL [Concomitant]

REACTIONS (9)
  - CIRCULATORY COLLAPSE [None]
  - DECREASED APPETITE [None]
  - DEMENTIA [None]
  - INFLUENZA LIKE ILLNESS [None]
  - MARKEDLY REDUCED DIETARY INTAKE [None]
  - NAUSEA [None]
  - RASH [None]
  - RENAL DISORDER [None]
  - TREMOR [None]
